FAERS Safety Report 9547263 (Version 1)
Quarter: 2013Q2

REPORT INFORMATION
  Report Type: Spontaneous
  Country: US (occurrence: None)
  Receive Date: 20130606
  Receipt Date: 20130606
  Transmission Date: 20140414
  Serious: Yes (Other)
  Sender: FDA-Public Use
  Company Number: 2012PROUSA02329

PATIENT
  Age: 59 Year
  Sex: Male
  Weight: 111.6 kg

DRUGS (3)
  1. PROVENGE [Suspect]
     Indication: PROSTATE CANCER METASTATIC
     Route: 042
     Dates: start: 20121105, end: 20121105
  2. BENICAR (OLMESARTAN MEDOXOMIL) [Concomitant]
  3. METFORMIN (METFORMIN HYDROCHLORIDE) [Concomitant]

REACTIONS (3)
  - Fall [None]
  - Orthostatic hypotension [None]
  - Dizziness [None]
